FAERS Safety Report 9384299 (Version 5)
Quarter: 2013Q3

REPORT INFORMATION
  Report Type: Report from Study
  Country: IN (occurrence: IN)
  Receive Date: 20130705
  Receipt Date: 20130819
  Transmission Date: 20140515
  Serious: Yes (Hospitalization)
  Sender: FDA-Public Use
  Company Number: PHHY2013IN067255

PATIENT
  Age: 37 Year
  Sex: Female
  Weight: 50 kg

DRUGS (28)
  1. SIMULECT [Suspect]
     Indication: RENAL TRANSPLANT
     Dosage: 5 MG, UNK
     Dates: start: 20130426
  2. SIMULECT [Suspect]
     Dosage: 20 MG, UNK
  3. MYFORTIC [Suspect]
     Indication: IMMUNOSUPPRESSION
     Dosage: 720 MG, BID
  4. TACROLIMUS [Suspect]
     Indication: IMMUNOSUPPRESSION
     Dosage: 6 MG, BID
  5. SANDIMMUN NEORAL [Concomitant]
     Dosage: UNK UKN, UNK
  6. TRAMADOL [Concomitant]
     Dosage: UNK UKN, UNK
  7. RANTAC [Concomitant]
     Dosage: UNK UKN, UNK
  8. CEFIZOX [Concomitant]
     Indication: ANTIBIOTIC PROPHYLAXIS
     Dosage: 1 G, UNK
  9. WYSOLONE [Concomitant]
     Dosage: 20 MG, UNK
  10. WYSOLONE [Concomitant]
     Dosage: 10 UNK, UNK
  11. PANTOP [Concomitant]
     Dosage: 40 MG, UNK
  12. PERINORM [Concomitant]
     Dosage: 40 MG, UNK
  13. DIAZEPAM [Concomitant]
     Dosage: UNK UKN, UNK
  14. PCM [Concomitant]
     Dosage: UNK UKN, UNK
  15. NIFEDIPINE [Concomitant]
     Dosage: 5 MG, UNK
  16. ANXITAB [Concomitant]
     Dosage: 0.25 MG, UNK
  17. XYLOCAINE [Concomitant]
     Dosage: UNK UKN, UNK
  18. MANNITOL [Concomitant]
     Dosage: 100 ML, UNK
  19. NORMAL SALINE [Concomitant]
     Dosage: 500 ML, UNK
  20. NORMAL SALINE [Concomitant]
     Dosage: 1LITRE
  21. HYDROCORTISONE [Concomitant]
     Dosage: UNK UKN, UNK
  22. PROPOFOL [Concomitant]
     Dosage: UNK UKN, UNK
  23. NORCURON [Concomitant]
     Dosage: 10 MG, UNK
  24. SENSORCAINE [Concomitant]
     Dosage: UNK UKN, UNK
  25. EMESET [Concomitant]
     Dosage: UNK UKN, UNK
  26. DEXTROSE [Concomitant]
     Dosage: 1LITRE
  27. AMLONG [Concomitant]
     Dosage: 10 MG ONCE DAILY
  28. DYTOR [Concomitant]
     Dosage: UNK UKN, UNK

REACTIONS (5)
  - Renal failure chronic [Unknown]
  - Urine output decreased [Unknown]
  - Nephrosclerosis [Unknown]
  - Hypertension [Unknown]
  - Kidney transplant rejection [Unknown]
